FAERS Safety Report 20515912 (Version 5)
Quarter: 2022Q2

REPORT INFORMATION
  Report Type: Spontaneous
  Country: US (occurrence: US)
  Receive Date: 20220225
  Receipt Date: 20220413
  Transmission Date: 20220721
  Serious: Yes (Hospitalization, Other)
  Sender: FDA-Public Use
  Company Number: US-UNITED THERAPEUTICS-UNT-2022-003944

PATIENT
  Age: 59 Year
  Sex: Female
  Weight: 57.596 kg

DRUGS (10)
  1. TYVASO [Suspect]
     Active Substance: TREPROSTINIL
     Indication: Pulmonary arterial hypertension
     Dosage: UNK
     Dates: start: 20211102
  2. TYVASO [Suspect]
     Active Substance: TREPROSTINIL
     Dosage: 18-54 ?G, QID
     Dates: end: 20220218
  3. VELETRI [Suspect]
     Active Substance: EPOPROSTENOL
     Indication: Product used for unknown indication
     Dosage: 0.004 ?G/KG
     Route: 065
     Dates: start: 202202, end: 202202
  4. VELETRI [Suspect]
     Active Substance: EPOPROSTENOL
     Dosage: 0.009 ?G/KG
     Route: 065
     Dates: start: 202202
  5. VELETRI [Suspect]
     Active Substance: EPOPROSTENOL
     Dosage: 0.017 ?G/KG
     Route: 065
  6. BUMEX [Suspect]
     Active Substance: BUMETANIDE
     Indication: Weight increased
     Dosage: UNK
     Route: 065
     Dates: end: 202203
  7. BUMEX [Suspect]
     Active Substance: BUMETANIDE
     Dosage: 1 MG, QOD (EVERY OTHER DAY)
     Route: 065
     Dates: start: 202203
  8. BUMEX [Suspect]
     Active Substance: BUMETANIDE
     Dosage: 2 MG, QD (FOR THE NEXT COUPLE OF DAYS)
     Route: 065
  9. SILDENAFIL CITRATE [Concomitant]
     Active Substance: SILDENAFIL CITRATE
     Indication: Product used for unknown indication
     Dosage: UNK
     Route: 065
  10. ISRADIPINE [Concomitant]
     Active Substance: ISRADIPINE
     Indication: Product used for unknown indication
     Dosage: UNK
     Route: 065

REACTIONS (16)
  - Disease progression [Unknown]
  - Respiration abnormal [Unknown]
  - Pulmonary hypertension [Unknown]
  - Right ventricular failure [Unknown]
  - Headache [Recovering/Resolving]
  - Cough [Unknown]
  - Pain in jaw [Unknown]
  - Fatigue [Recovering/Resolving]
  - Blood pressure increased [Unknown]
  - Pain [Unknown]
  - Diarrhoea [Unknown]
  - Renal disorder [Unknown]
  - Malaise [Unknown]
  - Weight increased [Unknown]
  - Catheter site pain [Unknown]
  - Catheter site bruise [Unknown]

NARRATIVE: CASE EVENT DATE: 20220214
